FAERS Safety Report 5738409-6 (Version None)
Quarter: 2008Q2

REPORT INFORMATION
  Report Type: 
  Country: None (occurrence: None)
  Receive Date: 20080513
  Receipt Date: 20080504
  Transmission Date: 20081010
  Serious: Yes (Other)
  Sender: FDA-Public Use
  Company Number: 19263

PATIENT
  Sex: 0

DRUGS (6)
  1. CARBOPLATIN [Suspect]
     Indication: GERM CELL CANCER
  2. PACLITAXEL [Suspect]
     Indication: GERM CELL CANCER
     Dosage: 200 MG/M2 PER_CYCLE
  3. ETOPOSIDE [Suspect]
     Indication: GERM CELL CANCER
     Dosage: 400 MG/M2 PER_CYCLE
  4. IFOSFAMIDE [Suspect]
     Indication: GERM CELL CANCER
     Dosage: 2 G/M2 PER_CYCLE
  5. CIPROFLOXACIN HCL [Concomitant]
  6. FILGRASTIM [Concomitant]

REACTIONS (3)
  - NEOPLASM PROGRESSION [None]
  - PERIRECTAL ABSCESS [None]
  - STEM CELL TRANSPLANT [None]
